FAERS Safety Report 6537559-4 (Version None)
Quarter: 2010Q1

REPORT INFORMATION
  Report Type: 
  Country: None (occurrence: None)
  Receive Date: 20100114
  Receipt Date: 20100107
  Transmission Date: 20100710
  Serious: Yes (Hospitalization)
  Sender: FDA-Public Use
  Company Number: US-ALEXION-A201000004

PATIENT
  Sex: Male

DRUGS (8)
  1. SOLIRIS [Suspect]
     Indication: PAROXYSMAL NOCTURNAL HAEMOGLOBINURIA
     Dosage: 600 MG, UNK
     Route: 042
  2. SOLIRIS [Suspect]
     Dosage: 900 MG, Q2W
     Route: 042
  3. ZOLOFT [Concomitant]
     Dosage: 50 MG, QD
     Route: 048
  4. PREDNISONE [Concomitant]
     Dosage: 60 MG, BID
     Route: 048
  5. MIRALAX [Concomitant]
     Dosage: 17 G, QD
     Route: 048
  6. CYCLOSPORINE [Concomitant]
     Dosage: UNK
     Route: 048
  7. COUMADIN [Concomitant]
     Dosage: 3 MG, QD
     Route: 048
     Dates: end: 20100104
  8. COUMADIN [Concomitant]
     Dosage: 2 MG, QD
     Route: 048
     Dates: start: 20100104

REACTIONS (1)
  - INTERNATIONAL NORMALISED RATIO INCREASED [None]
